FAERS Safety Report 9085752 (Version 1)
Quarter: 2013Q1

REPORT INFORMATION
  Report Type: Report from Study
  Country: US (occurrence: US)
  Receive Date: 20130131
  Receipt Date: 20130131
  Transmission Date: 20140127
  Serious: No
  Sender: FDA-Public Use
  Company Number: US-ABBOTT-12P-163-0989825-00

PATIENT
  Age: 35 Year
  Sex: Female

DRUGS (5)
  1. HUMIRA [Suspect]
     Indication: PSORIATIC ARTHROPATHY
     Dates: start: 20120918
  2. PRISTIQ [Concomitant]
     Indication: DEPRESSION
  3. SINGULAIR [Concomitant]
     Indication: HYPERSENSITIVITY
     Dosage: ONCE DAILY
  4. GENERESS [Concomitant]
     Indication: CONTRACEPTION
     Dosage: ONCE DAILY
  5. TRAZADONE [Concomitant]
     Indication: INSOMNIA

REACTIONS (5)
  - Injection site hypersensitivity [Recovered/Resolved]
  - Rash [Recovered/Resolved]
  - Injection site warmth [Recovering/Resolving]
  - Injection site pruritus [Recovering/Resolving]
  - Injection site pain [Recovering/Resolving]
